FAERS Safety Report 16658543 (Version 5)
Quarter: 2019Q4

REPORT INFORMATION
  Report Type: Report from Study
  Country: US (occurrence: US)
  Receive Date: 20190801
  Receipt Date: 20191210
  Transmission Date: 20200122
  Serious: Yes (Other)
  Sender: FDA-Public Use
  Company Number: US-SA-2019SA152840

PATIENT
  Age: 40 Year
  Sex: Female

DRUGS (1)
  1. ALEMTUZUMAB [Suspect]
     Active Substance: ALEMTUZUMAB
     Indication: MULTIPLE SCLEROSIS
     Dosage: 12 MG, QD
     Route: 041
     Dates: start: 20180416, end: 20180420

REACTIONS (16)
  - Neutropenia [Not Recovered/Not Resolved]
  - Headache [Unknown]
  - Nasopharyngitis [Recovered/Resolved]
  - Head injury [Unknown]
  - Laboratory test abnormal [Recovered/Resolved]
  - Muscular weakness [Not Recovered/Not Resolved]
  - Sneezing [Recovered/Resolved]
  - CD4 lymphocytes decreased [Unknown]
  - Cough [Recovered/Resolved]
  - Fatigue [Unknown]
  - Fall [Unknown]
  - Malaise [Unknown]
  - White blood cell count decreased [Not Recovered/Not Resolved]
  - Headache [Recovered/Resolved]
  - Foot fracture [Unknown]
  - Musculoskeletal stiffness [Not Recovered/Not Resolved]

NARRATIVE: CASE EVENT DATE: 20180416
